FAERS Safety Report 7900278-3 (Version None)
Quarter: 2011Q4

REPORT INFORMATION
  Report Type: 
  Country: None (occurrence: None)
  Receive Date: 20111108
  Receipt Date: 20111028
  Transmission Date: 20120403
  Serious: Yes (Hospitalization)
  Sender: FDA-Public Use
  Company Number: PL-JNJFOC-20110507720

PATIENT
  Sex: Male
  Weight: 94 kg

DRUGS (10)
  1. GOLIMUMAB [Suspect]
     Route: 058
  2. TORASEMIDUM [Concomitant]
     Route: 048
     Dates: start: 20100423
  3. FOLIC ACID [Concomitant]
     Route: 048
     Dates: start: 20060622
  4. GOLIMUMAB [Suspect]
     Indication: RHEUMATOID ARTHRITIS
     Route: 058
     Dates: start: 20110419
  5. GOLIMUMAB [Suspect]
     Route: 058
     Dates: start: 20060718
  6. METHOTREXATE [Suspect]
     Indication: RHEUMATOID ARTHRITIS
     Route: 048
     Dates: start: 20060622, end: 20070710
  7. GOLIMUMAB [Suspect]
     Route: 058
     Dates: start: 20070619
  8. SALMETEROL [Concomitant]
     Indication: RHEUMATOID ARTHRITIS
     Route: 048
     Dates: start: 20050101
  9. METHOTREXATE [Concomitant]
     Route: 048
     Dates: start: 20080617
  10. IPRATROPIUM BROMIDE [Concomitant]
     Route: 055
     Dates: start: 20100414

REACTIONS (12)
  - HYPERTENSION [None]
  - BLOOD GLUCOSE INCREASED [None]
  - BLOOD UREA INCREASED [None]
  - HEPATIC STEATOSIS [None]
  - PROSTATOMEGALY [None]
  - BLOOD CHLORIDE DECREASED [None]
  - LUNG ADENOCARCINOMA METASTATIC [None]
  - HAEMOGLOBIN DECREASED [None]
  - HEPATOMEGALY [None]
  - HAEMATOCRIT DECREASED [None]
  - CHRONIC OBSTRUCTIVE PULMONARY DISEASE [None]
  - NEUTROPENIA [None]
